FAERS Safety Report 11118706 (Version 3)
Quarter: 2015Q3

REPORT INFORMATION
  Report Type: Spontaneous
  Country: US (occurrence: US)
  Receive Date: 20150518
  Receipt Date: 20150707
  Transmission Date: 20151125
  Serious: Yes (Other)
  Sender: FDA-Public Use
  Company Number: US-DYAX CORP.-2015DX000225

PATIENT
  Age: 79 Year
  Sex: Female
  Weight: 90.8 kg

DRUGS (6)
  1. KALBITOR [Suspect]
     Active Substance: ECALLANTIDE
     Indication: HEREDITARY ANGIOEDEMA
     Route: 058
     Dates: start: 201309, end: 201309
  2. DANAZOL. [Concomitant]
     Active Substance: DANAZOL
     Indication: HEREDITARY ANGIOEDEMA
     Route: 065
  3. KALBITOR [Suspect]
     Active Substance: ECALLANTIDE
     Route: 058
  4. IBANAT [Concomitant]
     Indication: OSTEOPOROSIS
     Route: 048
  5. CINRYZE [Concomitant]
     Active Substance: HUMAN C1-ESTERASE INHIBITOR
     Indication: HEREDITARY ANGIOEDEMA
     Route: 042
     Dates: start: 201303
  6. VITAMIN D [Concomitant]
     Active Substance: CHOLECALCIFEROL
     Indication: OSTEOPOROSIS
     Route: 048

REACTIONS (5)
  - Squamous cell carcinoma of skin [Not Recovered/Not Resolved]
  - Cataract [Recovered/Resolved]
  - Basal cell carcinoma [Recovered/Resolved]
  - Malignant melanoma [Unknown]
  - Road traffic accident [Recovered/Resolved]

NARRATIVE: CASE EVENT DATE: 201504
